FAERS Safety Report 11256130 (Version 1)
Quarter: 2015Q3

REPORT INFORMATION
  Report Type: Spontaneous
  Country: US (occurrence: US)
  Receive Date: 20150709
  Receipt Date: 20150709
  Transmission Date: 20151125
  Serious: No
  Sender: FDA-Public Use
  Company Number: US-VIIV HEALTHCARE LIMITED-US2014GSK005814

PATIENT
  Sex: Male

DRUGS (4)
  1. MARAVIROC [Suspect]
     Active Substance: MARAVIROC
     Indication: HIV INFECTION
     Dosage: 300 MG, BID
     Route: 048
  2. RILPIVIRINE [Concomitant]
     Active Substance: RILPIVIRINE
  3. MARAVIROC [Suspect]
     Active Substance: MARAVIROC
     Dosage: 150 MG, BID
     Route: 048
     Dates: start: 2009
  4. RALTEGRAVIR. [Concomitant]
     Active Substance: RALTEGRAVIR

REACTIONS (2)
  - Arthralgia [Recovered/Resolved]
  - Off label use [Not Recovered/Not Resolved]
